FAERS Safety Report 6846073-8 (Version None)
Quarter: 2010Q3

REPORT INFORMATION
  Report Type: 
  Country: None (occurrence: None)
  Receive Date: 20100712
  Receipt Date: 20100706
  Transmission Date: 20110219
  Serious: Yes (Hospitalization, Other)
  Sender: FDA-Public Use
  Company Number: RB-03670-2010

PATIENT
  Age: 55 Year
  Sex: Female

DRUGS (2)
  1. SUBOXONE [Suspect]
     Indication: DRUG DEPENDENCE
     Dosage: 12 MG SUBLINGUAL
     Route: 060
     Dates: start: 20080101
  2. PREDNISONE [Suspect]
     Indication: DYSPNOEA
     Dosage: DOSING DETAILS UNKNOWN
     Dates: start: 20100101, end: 20100501

REACTIONS (14)
  - ABDOMINAL PAIN UPPER [None]
  - CELLULITIS [None]
  - COUGH [None]
  - DIARRHOEA [None]
  - DYSPNOEA [None]
  - FEELING JITTERY [None]
  - HAEMATEMESIS [None]
  - JOINT DISLOCATION [None]
  - LIMB INJURY [None]
  - LOWER RESPIRATORY TRACT INFECTION [None]
  - LUNG DISORDER [None]
  - PNEUMONIA [None]
  - SCAR [None]
  - VOMITING [None]
